FAERS Safety Report 8967951 (Version 1)
Quarter: 2012Q4

REPORT INFORMATION
  Report Type: 
  Country: FR (occurrence: FR)
  Receive Date: 20121217
  Receipt Date: 20121217
  Transmission Date: 20130627
  Serious: Yes (Hospitalization, Other)
  Sender: FDA-Public Use
  Company Number: FR-BRISTOL-MYERS SQUIBB COMPANY-17196072

PATIENT
  Age: 89 Year
  Sex: Male

DRUGS (14)
  1. COUMADIN [Suspect]
     Dosage: 08Aug2012
     Route: 048
     Dates: start: 20120725, end: 20120808
  2. PLAVIX [Suspect]
     Route: 048
     Dates: end: 20120725
  3. KARDEGIC [Suspect]
     Dosage: 1 doseage form, powder for oral solution in single dose sachet
     Route: 048
     Dates: end: 20120725
  4. ZOLOFT [Concomitant]
     Dosage: capsule (sertraline) one dosage form.
     Route: 048
  5. TRIATEC [Concomitant]
  6. AMLOR [Concomitant]
  7. LASILIX [Concomitant]
  8. TAHOR [Concomitant]
  9. TIAPRIDAL [Concomitant]
     Dosage: half tablet twice a day
     Dates: start: 20120806
  10. PRAXILENE [Concomitant]
  11. TEMESTA [Concomitant]
  12. TARDYFERON [Concomitant]
  13. UVEDOSE [Concomitant]
     Dosage: 1DF:1 ampule every 3 months.
  14. DIGOXINE NATIVELLE [Concomitant]
     Dates: start: 20120725

REACTIONS (2)
  - Subdural haematoma [Unknown]
  - Fall [Unknown]
